FAERS Safety Report 24602860 (Version 3)
Quarter: 2025Q1

REPORT INFORMATION
  Report Type: Spontaneous
  Country: HR (occurrence: HR)
  Receive Date: 20241111
  Receipt Date: 20250203
  Transmission Date: 20250408
  Serious: Yes (Death, Hospitalization, Other)
  Sender: INCYTE
  Company Number: HR-INCYTE CORPORATION-2024IN011888

PATIENT

DRUGS (1)
  1. PEMAZYRE [Suspect]
     Active Substance: PEMIGATINIB
     Indication: Cholangiocarcinoma
     Dosage: 13.5 MILLIGRAM, QD (DAILY FOR 14 DAYS/7 DAYS PAUSE)
     Route: 048
     Dates: start: 20231025, end: 202407

REACTIONS (8)
  - Sepsis [Fatal]
  - Neoplasm malignant [Fatal]
  - Skin necrosis [Not Recovered/Not Resolved]
  - Calciphylaxis [Unknown]
  - Cutaneous calcification [Not Recovered/Not Resolved]
  - Skin lesion [Unknown]
  - Blister [Unknown]
  - Skin bacterial infection [Unknown]

NARRATIVE: CASE EVENT DATE: 20240101
